FAERS Safety Report 18139539 (Version 2)
Quarter: 2020Q4

REPORT INFORMATION
  Report Type: Spontaneous
  Country: US (occurrence: US)
  Receive Date: 20200812
  Receipt Date: 20201015
  Transmission Date: 20210113
  Serious: No
  Sender: FDA-Public Use
  Company Number: US-PFIZER INC-2020305962

PATIENT
  Age: 49 Year
  Sex: Female
  Weight: 118 kg

DRUGS (1)
  1. IBRANCE [Suspect]
     Active Substance: PALBOCICLIB
     Indication: BREAST CANCER FEMALE
     Dosage: 125 MG, CYCLIC (DAILY 21 DAYS)/ (21 DAYS ON, 7 DAYS OFF)
     Route: 048
     Dates: start: 202007

REACTIONS (2)
  - Bone pain [Unknown]
  - White blood cell count decreased [Unknown]

NARRATIVE: CASE EVENT DATE: 2020
